FAERS Safety Report 13894430 (Version 1)
Quarter: 2017Q3

REPORT INFORMATION
  Report Type: Report from Study
  Country: CR (occurrence: CR)
  Receive Date: 20170823
  Receipt Date: 20170823
  Transmission Date: 20171127
  Serious: Yes (Death)
  Sender: FDA-Public Use
  Company Number: CR-ASTRAZENECA-2017SE85309

PATIENT
  Age: 27583 Day
  Sex: Female

DRUGS (1)
  1. NEXIUM [Suspect]
     Active Substance: ESOMEPRAZOLE MAGNESIUM
     Dosage: 40MG
     Route: 048
     Dates: start: 20150512

REACTIONS (1)
  - Death [Fatal]

NARRATIVE: CASE EVENT DATE: 20151230
